FAERS Safety Report 5968811-9 (Version None)
Quarter: 2008Q4

REPORT INFORMATION
  Report Type: 
  Country: None (occurrence: None)
  Receive Date: 20081125
  Receipt Date: 20081125
  Transmission Date: 20090506
  Serious: Yes (Other)
  Sender: FDA-Public Use
  Company Number: None

PATIENT
  Age: 58 Year
  Sex: Female
  Weight: 70.6 kg

DRUGS (2)
  1. ACTONEL [Suspect]
     Indication: OSTEOPOROSIS
     Dosage: 35 MG ONCE WEEKLY PO
     Route: 048
     Dates: start: 20041014, end: 20080426
  2. ALENDRONATE SODIUM [Suspect]
     Indication: OSTEOPOROSIS
     Dosage: 35MG ONCE WEEKLY PO
     Route: 048
     Dates: start: 20080529, end: 20080902

REACTIONS (3)
  - HAEMORRHAGE [None]
  - OSTEONECROSIS [None]
  - SYNCOPE [None]
